FAERS Safety Report 16658999 (Version 17)
Quarter: 2021Q3

REPORT INFORMATION
  Report Type: Report from Study
  Country: GB (occurrence: GB)
  Receive Date: 20190801
  Receipt Date: 20210922
  Transmission Date: 20211014
  Serious: Yes (Death, Hospitalization, Other)
  Sender: FDA-Public Use
  Company Number: GB-CELLTRION INC.-2019GB023216

PATIENT

DRUGS (171)
  1. ZOLEDRONIC ACID [Concomitant]
     Active Substance: ZOLEDRONIC ACID
     Dosage: 3.3 MILLIGRAM
     Route: 042
     Dates: start: 20170209, end: 20170323
  2. COCODAMOL [Concomitant]
     Active Substance: ACETAMINOPHEN\CODEINE PHOSPHATE
     Indication: BACK PAIN
     Dosage: 2 TABLET, PRN
     Route: 048
     Dates: start: 20160707
  3. TRAMADOL HYDROCHLORIDE. [Concomitant]
     Active Substance: TRAMADOL HYDROCHLORIDE
     Dosage: 200 MILLIGRAM, QD (PHARMACEUTICAL DOSAGE FORM: 245)
     Route: 048
     Dates: start: 20160217
  4. ATORVASTATIN [Concomitant]
     Active Substance: ATORVASTATIN
     Dosage: UNK
  5. DOCUSATE SODIUM. [Concomitant]
     Active Substance: DOCUSATE SODIUM
     Dosage: UNK, UNK
  6. METFORMIN [Concomitant]
     Active Substance: METFORMIN HYDROCHLORIDE
     Dosage: 2000 MILLIGRAM, QD (DOSE FORM: 245))
     Route: 048
  7. METFORMIN [Concomitant]
     Active Substance: METFORMIN HYDROCHLORIDE
     Dosage: UNK UNK, UNK
  8. BUDESONIDE. [Concomitant]
     Active Substance: BUDESONIDE
     Indication: PRODUCT USED FOR UNKNOWN INDICATION
     Dosage: 9 MILLIGRAM, QD (PHARMACEUTICAL DOSE FORM: 245)
     Route: 048
     Dates: start: 20190403, end: 20190523
  9. OCTASA [Concomitant]
     Active Substance: MESALAMINE
     Dosage: 800 MG
     Route: 048
     Dates: start: 20170523, end: 2017
  10. PHOSPHATE SANDOZ EFFERVESCENT [Concomitant]
     Indication: HYPOPHOSPHATAEMIA
     Dosage: 2 DOSAGE FORM
     Route: 048
     Dates: start: 20190611, end: 20190614
  11. PHOSPHATE SANDOZ EFFERVESCENT [Concomitant]
     Dosage: 2 DOSAGE FORM
     Route: 048
     Dates: start: 20190618, end: 20190625
  12. CINACALCET. [Concomitant]
     Active Substance: CINACALCET
     Indication: HYPERCALCAEMIA OF MALIGNANCY
     Dosage: 30 MILLIGRAM, QD (PHARMACEUTICAL DOSE FORM: 245)
     Route: 048
     Dates: start: 20190413
  13. MAGNESIUM GLYCEROPHOSPHATE [Concomitant]
     Active Substance: MAGNESIUM GLYCEROPHOSPHATE
     Dosage: 4 MMOL EVERY 0.33 DAY
     Route: 048
     Dates: start: 20160526, end: 20160530
  14. DIPROBASE [Concomitant]
     Active Substance: CHLOROCRESOL
     Indication: RASH PRURITIC
     Dosage: UNK
  15. SODIUM BICARBONATE. [Concomitant]
     Active Substance: SODIUM BICARBONATE
     Indication: HYPOPHOSPHATAEMIA
     Dosage: 2 TABLETS FOR 0.33/DAY (DOSE FORM: 245)
     Route: 048
     Dates: start: 20190611, end: 20190614
  16. SODIUM BICARBONATE. [Concomitant]
     Active Substance: SODIUM BICARBONATE
     Dosage: UNK
  17. SODIUM BICARBONATE. [Concomitant]
     Active Substance: SODIUM BICARBONATE
     Dosage: UNK
  18. PHOSPHATE?SANDOZ (UNITED KINGDOM) [Concomitant]
     Indication: HYPOPHOSPHATAEMIA
     Dosage: 2 TABLETS PER 0.33 DAY
     Route: 048
     Dates: start: 20190611, end: 20190614
  19. TRASTUZUMAB. [Suspect]
     Active Substance: TRASTUZUMAB
     Indication: BREAST CANCER METASTATIC
     Dosage: 525 MILLIGRAM, Q3WK (LOADING DOSE) (DOSAGE FORM 293, 230)
     Route: 041
     Dates: start: 20160225, end: 20160225
  20. TRASTUZUMAB. [Suspect]
     Active Substance: TRASTUZUMAB
     Dosage: 350 MILLIGRAM, Q3WK
     Route: 042
     Dates: start: 20160707, end: 20180822
  21. PERTUZUMAB. [Suspect]
     Active Substance: PERTUZUMAB
     Dosage: 420 MILLIGRAM, Q3WK (MAINTAINENCE DOSE) (PHARMACEUTICAL DOSAGE FORM: 230)
     Route: 042
     Dates: start: 20160225, end: 20180704
  22. XGEVA [Suspect]
     Active Substance: DENOSUMAB
     Indication: PRODUCT USED FOR UNKNOWN INDICATION
     Dosage: 120 MILLIGRAM, EVERY 3 TO 4 WEEKS, (DOSAGE FORM: 231)
     Route: 058
     Dates: start: 20180110, end: 20190426
  23. TAMOXIFEN CITRATE. [Suspect]
     Active Substance: TAMOXIFEN CITRATE
     Dosage: 1480 MILLIGRAM
     Route: 048
  24. CANDESARTAN. [Concomitant]
     Active Substance: CANDESARTAN
     Dosage: UNK
  25. MACROGOL [Concomitant]
     Active Substance: POLYETHYLENE GLYCOLS
     Dosage: 2 UNK UNK, ONCE A DAY
     Route: 065
  26. LOPERAMIDE [Concomitant]
     Active Substance: LOPERAMIDE
     Indication: PROPHYLAXIS
     Dosage: 2 MILLIGRAM, AS NECESSARY (DOSE FORM: 245)
     Route: 048
     Dates: start: 20160225
  27. ZOLEDRONIC ACID [Concomitant]
     Active Substance: ZOLEDRONIC ACID
     Dosage: 3.5 MILLIGRAM, EVERY 3?4WEEKS FOR 9 CYCLES THEN 3 MONTS
     Route: 042
     Dates: start: 20160414, end: 20170112
  28. COCODAMOL [Concomitant]
     Active Substance: ACETAMINOPHEN\CODEINE PHOSPHATE
     Dosage: 1 DF1 DOSAGE FORM, AS NECESSARY (PHARMACEUTICAL DOSAGE FORM: 245)
     Route: 048
  29. TRAMADOL HYDROCHLORIDE. [Concomitant]
     Active Substance: TRAMADOL HYDROCHLORIDE
     Indication: PRODUCT USED FOR UNKNOWN INDICATION
     Dosage: 50 MG, 4X/DAY (EVERY 0.25 DAY)
     Route: 048
     Dates: start: 20160217
  30. METOCLOPRAMIDE. [Concomitant]
     Active Substance: METOCLOPRAMIDE
     Indication: PRODUCT USED FOR UNKNOWN INDICATION
     Dosage: 10 MILLIGRAM, 3 TIMES A DAY (30 MILLIGRAM, ONCE A DAY) (PHARMACEUTICAL DOSAGE FORM: 245)
     Route: 048
  31. SITAGLIPTIN [Concomitant]
     Active Substance: SITAGLIPTIN
     Dosage: 100 MILLIGRAM, ONCE A DAY (PHARMACEUTICAL DOSAGE DOSAGE FORM: 245)
     Route: 048
  32. DOCUSATE SODIUM. [Concomitant]
     Active Substance: DOCUSATE SODIUM
     Dosage: 400 MILLIGRAM, QD (200 MG 0.5 DAY)
     Route: 048
  33. METFORMIN [Concomitant]
     Active Substance: METFORMIN HYDROCHLORIDE
     Dosage: 2000 MILLIGRAM, ONCE A DAY (PHARMACEUTICAL DOSAGE F ORM: 245)
     Route: 048
  34. BENZYDAMINE HYDROCHLORIDE [Concomitant]
     Active Substance: BENZYDAMINE HYDROCHLORIDE
     Indication: GLOSSODYNIA
     Dosage: UNK, UNK
  35. DENOSUMAB [Concomitant]
     Active Substance: DENOSUMAB
     Indication: PRODUCT USED FOR UNKNOWN INDICATION
     Dosage: 120 MG,EVERY 3?4 WEEKS
     Route: 058
     Dates: start: 20180110, end: 20190426
  36. SANDO K [POTASSIUM BICARBONATE;POTASSIUM CHLORIDE] [Concomitant]
     Active Substance: POTASSIUM BICARBONATE\POTASSIUM CHLORIDE
     Indication: PRODUCT USED FOR UNKNOWN INDICATION
     Dosage: UNK, 2, ONCE A DAY (PHARMACEUTICAL DOSAGE FORM: 59)
     Route: 048
     Dates: start: 20160322, end: 20160326
  37. PHOSPHATE SANDOZ [Concomitant]
     Active Substance: SODIUM PHOSPHATE, MONOBASIC, ANHYDROUS
     Indication: BLOOD PHOSPHORUS DECREASED
     Dosage: UNK (PHARMACEUTICAL DOSAGE FORM: 59)
     Route: 048
     Dates: start: 20190423, end: 20190425
  38. PHOSPHATE SANDOZ [Concomitant]
     Active Substance: SODIUM PHOSPHATE, MONOBASIC, ANHYDROUS
     Dosage: 2 DOSAGE FORM (PHARMACEUTICAL DOSE FORM: 245 AND 59)
     Route: 048
     Dates: start: 20190611, end: 20190614
  39. CINACALCET. [Concomitant]
     Active Substance: CINACALCET
     Indication: HYPERCALCAEMIA OF MALIGNANCY
     Dosage: 30 MILLIGRAM, QD
     Route: 048
     Dates: start: 20190413
  40. POTASSIUM BICARBONATE. [Concomitant]
     Active Substance: POTASSIUM BICARBONATE
     Indication: HYPOPHOSPHATAEMIA
     Dosage: 2 TABLETS (0.33 DAY) (DOSE FORM: 245)
     Route: 048
     Dates: start: 20190611, end: 20190614
  41. SODIUM BICARBONATE. [Concomitant]
     Active Substance: SODIUM BICARBONATE
     Dosage: 2 TABLETS FOR 0.33/DAY (PHARMACEUTICAL DOSGE FORM: 245)
     Route: 048
     Dates: start: 20190611, end: 20190614
  42. TRASTUZUMAB EMTANSINE [Suspect]
     Active Substance: ADO-TRASTUZUMAB EMTANSINE
     Indication: BREAST CANCER METASTATIC
     Dosage: 220 MILLIGRAM, Q3WK
     Route: 042
     Dates: start: 20180928, end: 20190315
  43. LETROZOLE. [Suspect]
     Active Substance: LETROZOLE
     Indication: BREAST CANCER METASTATIC
     Dosage: UNK
     Route: 065
  44. MACROGOL [Concomitant]
     Active Substance: POLYETHYLENE GLYCOLS
     Dosage: UNK, EVERY 0.5 DAYS (SACHET)
     Route: 065
  45. MACROGOL [Concomitant]
     Active Substance: POLYETHYLENE GLYCOLS
     Dosage: UNK UNK, BID
  46. LOPERAMIDE [Concomitant]
     Active Substance: LOPERAMIDE
     Dosage: UNK, UNK
  47. ZOLEDRONIC ACID [Concomitant]
     Active Substance: ZOLEDRONIC ACID
     Dosage: 3 MILLIGRAM
     Route: 042
     Dates: start: 20170628, end: 20171220
  48. DOMPERIDONE [Concomitant]
     Active Substance: DOMPERIDONE
     Dosage: 10 MILLIGRAM, EVERY 0.33 DAYS
     Route: 048
     Dates: start: 20160225
  49. SITAGLIPTIN [Concomitant]
     Active Substance: SITAGLIPTIN
     Dosage: UNK
  50. CHLORHEXIDINE GLUCONATE. [Concomitant]
     Active Substance: CHLORHEXIDINE GLUCONATE
     Indication: PROPHYLAXIS
     Dosage: 0.8 PERCENT, QD (0.2 PERCENT 0.25 DAY) (DOSE FORM: 135))
     Route: 048
     Dates: start: 20160225
  51. CHLORHEXIDINE GLUCONATE. [Concomitant]
     Active Substance: CHLORHEXIDINE GLUCONATE
     Dosage: 0.2 PERCENT, QD
     Route: 048
     Dates: start: 20160225
  52. CHLORHEXIDINE GLUCONATE. [Concomitant]
     Active Substance: CHLORHEXIDINE GLUCONATE
     Dosage: 0.8 %0.8 PERCENT, QD (0.2 PERCENT 0.25 DAY)
     Route: 048
     Dates: start: 20160225
  53. ZOPICLONE [Concomitant]
     Active Substance: ZOPICLONE
     Indication: PRODUCT USED FOR UNKNOWN INDICATION
     Dosage: 3.75 MILLIGRAM, QD(PHARMACEUTICAL DOSE FORM: 245)
     Route: 048
     Dates: start: 20160217
  54. METFORMIN [Concomitant]
     Active Substance: METFORMIN HYDROCHLORIDE
     Dosage: UNK
  55. METFORMIN [Concomitant]
     Active Substance: METFORMIN HYDROCHLORIDE
     Indication: PRODUCT USED FOR UNKNOWN INDICATION
     Dosage: 2000 MILLIGRAM, QD (PHARMACEUTICAL DOSAGE FORM: 245)
     Route: 048
  56. METFORMIN [Concomitant]
     Active Substance: METFORMIN HYDROCHLORIDE
     Dosage: 1000 MILLIGRAM EVERY 0.5 DAY(PHARMACEUTICAL DOSAGE FORM: 245)
     Route: 065
  57. POTASSIUM CHLORIDE. [Concomitant]
     Active Substance: POTASSIUM CHLORIDE
     Indication: BLOOD POTASSIUM DECREASED
     Dosage: UNK MMOL/L, AS NECESSARY, EVERY 3?4WEEKS FOR 9 CYCLES THEN 3 MONTHS
     Route: 042
     Dates: start: 20190611, end: 20190620
  58. OCTASA [Concomitant]
     Active Substance: MESALAMINE
     Indication: GASTROINTESTINAL MOTILITY DISORDER
     Dosage: 800 MILLIGRAM, 3 TIMES A DAY (2400 MILLIGRAM, ONCE A DAY) (PHARMACEUTICAL DOSE FORM: 245)
     Route: 048
     Dates: start: 20170523
  59. SODIUM CHLORIDE. [Concomitant]
     Active Substance: SODIUM CHLORIDE
     Indication: PRODUCT USED FOR UNKNOWN INDICATION
     Dosage: UNK
  60. TRASTUZUMAB. [Suspect]
     Active Substance: TRASTUZUMAB
     Dosage: 220 MILLIGRAM, 3 WEEK (PHARMACEUTICAL DOSAGE FORM: 230)
     Route: 042
     Dates: start: 20180928
  61. TAMOXIFEN [Suspect]
     Active Substance: TAMOXIFEN
     Indication: HER2 POSITIVE BREAST CANCER
     Dosage: UNK
     Route: 065
  62. PERTUZUMAB. [Suspect]
     Active Substance: PERTUZUMAB
     Indication: HER2 POSITIVE BREAST CANCER
     Dosage: 420 MILLIGRAM, Q3WK (MAINTAINENCE DOSE)
     Route: 042
     Dates: start: 20160225, end: 20180704
  63. PERTUZUMAB. [Suspect]
     Active Substance: PERTUZUMAB
     Indication: BREAST CANCER METASTATIC
     Dosage: UNK
     Route: 065
  64. PERTUZUMAB. [Suspect]
     Active Substance: PERTUZUMAB
     Indication: HER2 POSITIVE BREAST CANCER
     Dosage: UNK
  65. DOCETAXEL. [Suspect]
     Active Substance: DOCETAXEL
     Indication: BREAST CANCER METASTATIC
     Dosage: 65 MILLIGRAM, Q3WK
     Route: 042
     Dates: start: 20160226, end: 20160226
  66. LETROZOLE. [Suspect]
     Active Substance: LETROZOLE
     Indication: HER2 POSITIVE BREAST CANCER
     Dosage: 2.5 MILLIGRAM, QD
     Route: 048
     Dates: start: 20160413, end: 20180704
  67. CANDESARTAN. [Concomitant]
     Active Substance: CANDESARTAN
     Dosage: 8 MILLIGRAM, QD
     Route: 048
  68. MACROGOL COMP [Concomitant]
     Dosage: UNK, BID
     Route: 048
  69. LOPERAMIDE [Concomitant]
     Active Substance: LOPERAMIDE
     Dosage: UNK UNK, UNK
  70. ZOLEDRONIC ACID [Concomitant]
     Active Substance: ZOLEDRONIC ACID
     Dosage: 3.5 MILLIGRAM
     Route: 042
     Dates: start: 20190408, end: 20190408
  71. RIVAROXABAN [Concomitant]
     Active Substance: RIVAROXABAN
     Indication: PULMONARY EMBOLISM
     Dosage: UNK, QD
     Route: 048
     Dates: start: 20181128
  72. RIVAROXABAN [Concomitant]
     Active Substance: RIVAROXABAN
     Indication: PRODUCT USED FOR UNKNOWN INDICATION
     Dosage: UNK, QD (PHARMACEUTICAL DOSE FORM: 245)
     Route: 048
     Dates: start: 20181128
  73. DOMPERIDONE [Concomitant]
     Active Substance: DOMPERIDONE
     Indication: PRODUCT USED FOR UNKNOWN INDICATION
     Dosage: 10 MILLIGRAM, TID; 30 MILLIGRAM, QD (10 0.33 DAY ) (PHARMACEUTICAL DOSAGE FORM: 245)
     Route: 048
     Dates: start: 20160225
  74. DEXAMETHASONE. [Concomitant]
     Active Substance: DEXAMETHASONE
     Indication: PRODUCT USED FOR UNKNOWN INDICATION
     Dosage: 16 MILLIGRAM, QD (PHARMACEUTICAL DOSAGE FORM: 245)
     Route: 048
     Dates: start: 20160225
  75. ATORVASTATIN [Concomitant]
     Active Substance: ATORVASTATIN
     Indication: PRODUCT USED FOR UNKNOWN INDICATION
     Dosage: 20 MILLIGRAM, ONCE A DAY (PHARMACEUTICAL DOSE FORM: 245)
     Route: 048
  76. METOCLOPRAMIDE. [Concomitant]
     Active Substance: METOCLOPRAMIDE
     Dosage: UNK
  77. SITAGLIPTIN [Concomitant]
     Active Substance: SITAGLIPTIN
     Dosage: UNK
  78. DOCUSATE SODIUM. [Concomitant]
     Active Substance: DOCUSATE SODIUM
     Dosage: UNK, UNK
  79. POTASSIUM BICARBONATE;SODIUM BICARBONATE;SODIUM PHOSPHATE MONOBASIC (A [Concomitant]
     Dosage: 2 TABLETS EVERY 0.33 DAY
     Route: 048
     Dates: start: 20190611, end: 20190614
  80. OCTASA [Concomitant]
     Active Substance: MESALAMINE
     Indication: GASTROINTESTINAL MOTILITY DISORDER
     Dosage: 800 MILLIGRAM, TID
     Route: 048
     Dates: start: 20170523, end: 2017
  81. OCTASA [Concomitant]
     Active Substance: MESALAMINE
     Indication: GASTROINTESTINAL MOTILITY DISORDER
     Dosage: UNK
  82. MAGNESIUM GLYCEROPHOSPHATE [Concomitant]
     Active Substance: MAGNESIUM GLYCEROPHOSPHATE
     Indication: HYPOMAGNESAEMIA
     Dosage: 4 MILLIMOLE, TID; 12 MILLIMOLE, QD
     Route: 048
     Dates: start: 20160526, end: 20160530
  83. SODIUM CHLORIDE. [Concomitant]
     Active Substance: SODIUM CHLORIDE
     Dosage: UNK
  84. ACTRAPID [Concomitant]
     Active Substance: INSULIN HUMAN
     Dosage: UNK
     Route: 058
     Dates: start: 20190620, end: 20190705
  85. TRASTUZUMAB. [Suspect]
     Active Substance: TRASTUZUMAB
     Dosage: 350 MILLIGRAM, Q3WK (PHARMACEUTICAL DOSE FORM: 230)
     Route: 042
     Dates: start: 20160707, end: 20160822
  86. TRASTUZUMAB. [Suspect]
     Active Substance: TRASTUZUMAB
     Dosage: 220 MILLIGRAM, EVERY 2 WEEKS (PHARMACEUTICAL DOSE FORM: 293)
     Route: 042
     Dates: start: 20180928, end: 20190315
  87. MACROGOL [Concomitant]
     Active Substance: POLYETHYLENE GLYCOLS
     Dosage: UNK UNK, UNK
  88. MACROGOL [Concomitant]
     Active Substance: POLYETHYLENE GLYCOLS
     Dosage: UNK
  89. LOPERAMIDE [Concomitant]
     Active Substance: LOPERAMIDE
     Indication: PRODUCT USED FOR UNKNOWN INDICATION
     Dosage: 2 MG, AS NEEDED (PHARMACEUTICAL DOSE FORM: 245)
     Route: 048
     Dates: start: 20160225
  90. COCODAMOL [Concomitant]
     Active Substance: ACETAMINOPHEN\CODEINE PHOSPHATE
     Dosage: 1 DOSAGE FORM, AS NECESSARY
     Route: 048
  91. METOCLOPRAMIDE. [Concomitant]
     Active Substance: METOCLOPRAMIDE
     Dosage: 10 MG EVERY 0.33 DAY
     Route: 048
  92. SITAGLIPTIN [Concomitant]
     Active Substance: SITAGLIPTIN
     Dosage: 100 MILLIGRAM, QD
     Route: 048
  93. DOCUSATE SODIUM. [Concomitant]
     Active Substance: DOCUSATE SODIUM
     Indication: PRODUCT USED FOR UNKNOWN INDICATION
     Dosage: 200 MILLIGRAM, TWO TIMES A DAY (400 MILLIGRAM, ONCE A DAY) (PHARMACEUTICAL DOSE FORM: 5)
     Route: 048
  94. DOCUSATE SODIUM. [Concomitant]
     Active Substance: DOCUSATE SODIUM
     Dosage: 200 MG EVERY 0.5 DAY
     Route: 048
  95. POTASSIUM CHLORIDE. [Concomitant]
     Active Substance: POTASSIUM CHLORIDE
     Dosage: UNK
  96. DENOSUMAB [Concomitant]
     Active Substance: DENOSUMAB
     Dosage: 120 MG
     Route: 058
     Dates: start: 20180110
  97. AMLODIPINE [Concomitant]
     Active Substance: AMLODIPINE BESYLATE
     Dosage: 5 MILLIGRAM, QD
     Route: 048
     Dates: start: 20180915, end: 20190529
  98. TRIMETHOPRIM. [Concomitant]
     Active Substance: TRIMETHOPRIM
     Indication: URINARY TRACT INFECTION
     Dosage: UNK
     Route: 048
     Dates: start: 20190412, end: 20190414
  99. PHOSPHATE SANDOZ EFFERVESCENT [Concomitant]
     Indication: BLOOD PHOSPHORUS DECREASED
     Dosage: UNK
     Route: 048
     Dates: start: 20190423, end: 20190425
  100. DIPROBASE [Concomitant]
     Active Substance: CHLOROCRESOL
     Dosage: UNK
     Route: 048
  101. SODIUM PHOSPHATE MONOBASIC [Concomitant]
     Active Substance: SODIUM PHOSPHATE, MONOBASIC
     Dosage: UNK
  102. TRASTUZUMAB. [Suspect]
     Active Substance: TRASTUZUMAB
     Indication: HER2 POSITIVE BREAST CANCER
     Dosage: 400 MILLIGRAM, Q3WK (MAINTAINENCE DOSE)(PHARMACEUTICAL DOSAGE FORM 293)
     Route: 042
     Dates: start: 20160225, end: 20160617
  103. TAXOTERE [Suspect]
     Active Substance: DOCETAXEL
     Indication: HER2 POSITIVE BREAST CANCER
     Dosage: 65 MILLIGRAM, Q3WK
     Route: 042
     Dates: start: 20160226, end: 20160226
  104. TAMOXIFEN CITRATE. [Suspect]
     Active Substance: TAMOXIFEN CITRATE
     Indication: BREAST CANCER METASTATIC
     Dosage: UNK
  105. MACROGOL [Concomitant]
     Active Substance: POLYETHYLENE GLYCOLS
     Indication: PRODUCT USED FOR UNKNOWN INDICATION
     Dosage: 2 UNK, QD (SACHET)
     Route: 065
  106. MACROGOL [Concomitant]
     Active Substance: POLYETHYLENE GLYCOLS
     Dosage: UNK
     Route: 048
  107. LOPERAMIDE [Concomitant]
     Active Substance: LOPERAMIDE
     Dosage: 4 MG, PRN
     Route: 048
     Dates: start: 201607, end: 201703
  108. LOPERAMIDE [Concomitant]
     Active Substance: LOPERAMIDE
     Dosage: UNK
  109. ZOLEDRONIC ACID [Concomitant]
     Active Substance: ZOLEDRONIC ACID
     Dosage: 3.3 MILLIGRAM, QMO
     Route: 042
     Dates: start: 20160226, end: 20170323
  110. DEXAMETHASONE. [Concomitant]
     Active Substance: DEXAMETHASONE
     Indication: PROPHYLAXIS
     Dosage: 16 MILLIGRAM, QD
     Route: 048
     Dates: start: 20160225
  111. ATORVASTATIN [Concomitant]
     Active Substance: ATORVASTATIN
     Dosage: 20 MILLIGRAM, QD
     Route: 048
  112. CHLORHEXIDINE GLUCONATE. [Concomitant]
     Active Substance: CHLORHEXIDINE GLUCONATE
     Indication: PRODUCT USED FOR UNKNOWN INDICATION
     Dosage: 0.2 %, (MOUTH WASH) EVERY 0.25 DAY (PHARMACEUTICAL DOSE FORM: 135)
     Route: 048
  113. ZOPICLONE [Concomitant]
     Active Substance: ZOPICLONE
     Dosage: 3.75 MILLIGRAM, QD
     Route: 048
     Dates: start: 20160217
  114. METFORMIN [Concomitant]
     Active Substance: METFORMIN HYDROCHLORIDE
     Dosage: UNK
  115. GLICLAZIDE [Concomitant]
     Active Substance: GLICLAZIDE
     Indication: PRODUCT USED FOR UNKNOWN INDICATION
     Dosage: 80 MILLIGRAM, QD
     Route: 048
     Dates: start: 201809, end: 20190424
  116. GLICLAZIDE [Concomitant]
     Active Substance: GLICLAZIDE
     Dosage: 80 MILLIGRAM, QD
     Route: 048
     Dates: start: 20190425, end: 201905
  117. GLICLAZIDE [Concomitant]
     Active Substance: GLICLAZIDE
     Dosage: 40 MILLIGRAM, QD
     Route: 048
     Dates: start: 20190620, end: 20190705
  118. POTASSIUM CHLORIDE. [Concomitant]
     Active Substance: POTASSIUM CHLORIDE
     Dosage: UNK MMOL/L, AS NECESSARY, EVERY 3?4WEEKS FOR 9 CYCLES THEN 3 MONTS
     Route: 042
     Dates: start: 20190611, end: 20190620
  119. PHOSPHATE SANDOZ [Concomitant]
     Active Substance: SODIUM PHOSPHATE, MONOBASIC, ANHYDROUS
     Dosage: 2 DOSAGE FORM (PHARMACEUTICAL DOSE FORM: 245 AND 59)
     Route: 048
     Dates: start: 20190618, end: 20190625
  120. MAGNESIUM GLYCEROPHOSPHATE [Concomitant]
     Active Substance: MAGNESIUM GLYCEROPHOSPHATE
     Dosage: UNK
  121. DIPROBASE [Concomitant]
     Active Substance: CHLOROCRESOL
     Dosage: UNK
     Route: 065
  122. SODIUM CHLORIDE. [Concomitant]
     Active Substance: SODIUM CHLORIDE
     Dosage: 0.9 PERCENT
     Route: 042
     Dates: start: 20190508, end: 20190510
  123. TRASTUZUMAB. [Suspect]
     Active Substance: TRASTUZUMAB
     Dosage: 400 MILLIGRAM, Q3WK (MAINTAINENCE DOSE)
     Route: 042
     Dates: start: 20160617
  124. TAMOXIFEN [Suspect]
     Active Substance: TAMOXIFEN
     Indication: BREAST CANCER METASTATIC
     Dosage: 20 MILLIGRAM, ONCE A DAY
     Route: 048
     Dates: start: 20180704, end: 20180915
  125. TAXOTERE [Suspect]
     Active Substance: DOCETAXEL
     Dosage: UNK
     Route: 065
  126. PERTUZUMAB. [Suspect]
     Active Substance: PERTUZUMAB
     Indication: BREAST CANCER METASTATIC
     Dosage: 840 MILLIGRAM, Q3WK (LOADING DOSE)
     Route: 042
     Dates: start: 20160225, end: 20160225
  127. MIMPARA [Suspect]
     Active Substance: CINACALCET HYDROCHLORIDE
     Indication: HYPERCALCAEMIA OF MALIGNANCY
     Dosage: 30 MILLIGRAM, QD (PHARMACEUTICAL DOSAGE FORM: 245)
     Route: 048
     Dates: start: 20190413, end: 201907
  128. MACROGOL [Concomitant]
     Active Substance: POLYETHYLENE GLYCOLS
     Dosage: UNK, EVERY 0.5 DAYS (SACHET)
     Route: 065
  129. DOMPERIDONE [Concomitant]
     Active Substance: DOMPERIDONE
     Dosage: 30 MILLIGRAM, QD (10 0.33 DAY ) (DOSE FORM: 245))
     Route: 048
     Dates: start: 20160225
  130. ATORVASTATIN [Concomitant]
     Active Substance: ATORVASTATIN
     Dosage: UNK, QD
  131. METOCLOPRAMIDE. [Concomitant]
     Active Substance: METOCLOPRAMIDE
     Dosage: UNK
  132. SITAGLIPTIN [Concomitant]
     Active Substance: SITAGLIPTIN
     Indication: PRODUCT USED FOR UNKNOWN INDICATION
     Dosage: 100 MILLIGRAM, QD (PHARMACEUTICAL DOSE FORM: 245)
     Route: 048
  133. DOCUSATE SODIUM. [Concomitant]
     Active Substance: DOCUSATE SODIUM
     Dosage: 200 MG, EVERY 0.5DAY
     Route: 048
  134. METFORMIN [Concomitant]
     Active Substance: METFORMIN HYDROCHLORIDE
     Dosage: UNK UNK, UNK
  135. POTASSIUM BICARBONATE;SODIUM BICARBONATE;SODIUM PHOSPHATE MONOBASIC (A [Concomitant]
     Indication: HYPOPHOSPHATAEMIA
     Dosage: 2 TAB, BID
     Route: 048
     Dates: start: 20190611, end: 20190614
  136. BUDESONIDE. [Concomitant]
     Active Substance: BUDESONIDE
     Dosage: 9 MILLIGRAM, ONCE A DAY (PHARMACEUTICAL DOSE FORM: 245)
     Route: 048
     Dates: start: 20190403
  137. AMLODIPINE [Concomitant]
     Active Substance: AMLODIPINE BESYLATE
     Indication: HYPERTENSION
     Dosage: 5 MILLIGRAM, ONCE A DAY
     Route: 048
  138. TRIMETHOPRIM. [Concomitant]
     Active Substance: TRIMETHOPRIM
     Indication: URINARY TRACT INFECTION
     Dosage: UNK
     Route: 048
     Dates: start: 20190412, end: 20190414
  139. SANDO K [Concomitant]
     Dosage: UNK MMOL/L, AS NECESSARY, EVERY 3?4WEEKS FOR 9 CYCLES THEN 3 MONTHS(DOSAGE FORM 59)
     Route: 048
     Dates: start: 20160322, end: 20160326
  140. SANDO K [POTASSIUM BICARBONATE;POTASSIUM CHLORIDE] [Concomitant]
     Active Substance: POTASSIUM BICARBONATE\POTASSIUM CHLORIDE
     Dosage: EFFERVESCENT 2 TABLETS EVERY 0.5 DAY
     Route: 048
     Dates: start: 20160322, end: 20160326
  141. POTASSIUM BICARBONATE. [Concomitant]
     Active Substance: POTASSIUM BICARBONATE
     Dosage: 2 TAB, TID
     Route: 048
     Dates: start: 20190611, end: 20190614
  142. SODIUM PHOSPHATE MONOBASIC [Concomitant]
     Active Substance: SODIUM PHOSPHATE, MONOBASIC
     Indication: HYPOPHOSPHATAEMIA
     Dosage: 2 DF, 3X/DAY (2 TABLETS ) (DOSE FORM: 245)
     Route: 048
     Dates: start: 20190611, end: 20190614
  143. NERATINIB [Suspect]
     Active Substance: NERATINIB
     Indication: HER2 POSITIVE BREAST CANCER
     Dosage: 240 MILLIGRAM, QD
     Route: 048
     Dates: start: 20190403
  144. TAXOTERE [Suspect]
     Active Substance: DOCETAXEL
     Indication: BREAST CANCER METASTATIC
     Dosage: 65 MG, EVERY 3 WEEKS
     Route: 042
     Dates: start: 20180226, end: 20180226
  145. TRASTUZUMAB EMTANSINE [Suspect]
     Active Substance: ADO-TRASTUZUMAB EMTANSINE
     Indication: HER2 POSITIVE BREAST CANCER
     Dosage: DOSE FORM: 230
     Route: 065
  146. TRASTUZUMAB EMTANSINE [Suspect]
     Active Substance: ADO-TRASTUZUMAB EMTANSINE
     Dosage: 1980 MILLIGRAM
     Route: 042
     Dates: start: 20180928, end: 20190315
  147. FEMARA [Suspect]
     Active Substance: LETROZOLE
     Indication: HER2 POSITIVE BREAST CANCER
     Dosage: 2.5 MG, DAILY, DISCONTINUED DUE TO DISEASE PROGRESSION AND FURTHER ANTICANCER TREATMENT
     Route: 048
     Dates: start: 20160413, end: 20180704
  148. PERTUZUMAB. [Suspect]
     Active Substance: PERTUZUMAB
     Dosage: 420 MILLIGRAM, 1 EVERY 3 WEEK INTERVAL (PHARMACEUTICAL DOSAGE FORM: 230)
     Route: 042
     Dates: start: 20170523
  149. DOCETAXEL. [Suspect]
     Active Substance: DOCETAXEL
     Dosage: UNK
  150. TAMOXIFEN CITRATE. [Suspect]
     Active Substance: TAMOXIFEN CITRATE
     Indication: HER2 POSITIVE BREAST CANCER
     Dosage: 20 MILLIGRAM, QD
     Route: 048
     Dates: start: 20180704, end: 20180915
  151. CANDESARTAN. [Concomitant]
     Active Substance: CANDESARTAN
     Indication: PRODUCT USED FOR UNKNOWN INDICATION
     Dosage: 8 MILLIGRAM, ONCE A DAY (PHARMACEUTICAL DOSE FORM: 245)
     Route: 048
  152. MACROGOL [Concomitant]
     Active Substance: POLYETHYLENE GLYCOLS
     Dosage: UNK UNK, TWO TIMES A DAY
     Route: 065
  153. LOPERAMIDE [Concomitant]
     Active Substance: LOPERAMIDE
     Dosage: 4 MILLIGRAM (PHARMACEUTICAL DOSAGE FORM: 245)
     Route: 048
     Dates: start: 201607, end: 201703
  154. ZOLEDRONIC ACID [Concomitant]
     Active Substance: ZOLEDRONIC ACID
     Indication: PROPHYLAXIS
     Dosage: 3.3 MG, MONTHLY (3.3 MILLIGRAM, QMO)
     Route: 042
     Dates: start: 20160226
  155. ZOLEDRONIC ACID [Concomitant]
     Active Substance: ZOLEDRONIC ACID
     Dosage: 3 MILLIGRAM
     Route: 042
     Dates: start: 20190510, end: 20190529
  156. COCODAMOL [Concomitant]
     Active Substance: ACETAMINOPHEN\CODEINE PHOSPHATE
     Dosage: 1 DF1 DOSAGE FORM, AS NECESSARY (PHARMACEUTICAL DOSAGE FORM: 245)
     Route: 048
  157. DEXAMETHASONE. [Concomitant]
     Active Substance: DEXAMETHASONE
     Dosage: 8MG EVERY 0.5 DAY
     Route: 048
     Dates: start: 20160225
  158. CALCICHEW D3 FORTE [Concomitant]
     Active Substance: CALCIUM\CHOLECALCIFEROL
     Indication: PRODUCT USED FOR UNKNOWN INDICATION
     Dosage: 2 DOSAGE FORM, QD
     Route: 048
     Dates: start: 20160323
  159. METOCLOPRAMIDE. [Concomitant]
     Active Substance: METOCLOPRAMIDE
     Dosage: 30 MILLIGRAM, QD (0.33 DAY) (PHARMACEUTICAL DOSAGE FORM: 245)
     Route: 048
  160. CHLORHEXIDINE GLUCONATE. [Concomitant]
     Active Substance: CHLORHEXIDINE GLUCONATE
     Dosage: 0.2 PERCENT EVERY 0.25 DAY (MOUTHWASH)
     Route: 048
     Dates: start: 20160225
  161. BENZYDAMINE HYDROCHLORIDE [Concomitant]
     Active Substance: BENZYDAMINE HYDROCHLORIDE
     Dosage: 5 MILLILITER
     Route: 061
     Dates: start: 20190606, end: 20190705
  162. BUDESONIDE. [Concomitant]
     Active Substance: BUDESONIDE
     Dosage: 9 MILLIGRAM, QD
     Route: 048
     Dates: start: 20190403, end: 20190523
  163. HUMAN ACTRAPID [Concomitant]
     Active Substance: INSULIN HUMAN
     Indication: PRODUCT USED FOR UNKNOWN INDICATION
     Dosage: UNK
     Route: 058
     Dates: start: 20190620, end: 20190705
  164. HUMAN ACTRAPID [Concomitant]
     Active Substance: INSULIN HUMAN
     Dosage: UNK
     Route: 058
     Dates: start: 20190620
  165. TINZAPARIN [Concomitant]
     Active Substance: TINZAPARIN
     Indication: PRODUCT USED FOR UNKNOWN INDICATION
     Dosage: 11000 UNIT, QD
     Route: 058
     Dates: start: 20180915, end: 20181128
  166. LINAGLIPTIN [Concomitant]
     Active Substance: LINAGLIPTIN
     Indication: PRODUCT USED FOR UNKNOWN INDICATION
     Dosage: 5 MILLIGRAM, QD
     Route: 048
     Dates: start: 201809, end: 201905
  167. TRASTUZUMAB EMTANSINE [Suspect]
     Active Substance: ADO-TRASTUZUMAB EMTANSINE
     Dosage: UNK
  168. FEMARA [Suspect]
     Active Substance: LETROZOLE
     Dosage: UNK
     Route: 065
  169. PERTUZUMAB. [Suspect]
     Active Substance: PERTUZUMAB
     Dosage: 840 MG, EVERY 3 WEEKS (LOADING DOSE) (PHARMACEUTICAL DOSE FORM: 230)
     Route: 042
     Dates: start: 20160225, end: 20160225
  170. PERTUZUMAB. [Suspect]
     Active Substance: PERTUZUMAB
     Dosage: 420 MILLIGRAM, 1 EVERY 3 WEEK (PHARMACEUTICAL DOSAGE FORM: 230)
     Route: 042
     Dates: start: 20160225, end: 20180703
  171. MACROGOL COMP [Concomitant]
     Dosage: 2 UNK, QD (SACHET)
     Route: 065

REACTIONS (18)
  - Diarrhoea [Recovered/Resolved]
  - Weight decreased [Fatal]
  - Decreased appetite [Not Recovered/Not Resolved]
  - Diarrhoea [Recovered/Resolved]
  - Weight decreased [Recovered/Resolved]
  - Condition aggravated [Fatal]
  - Off label use [Fatal]
  - Cholelithiasis [Not Recovered/Not Resolved]
  - Urinary tract infection [Recovered/Resolved]
  - Acute kidney injury [Recovered/Resolved]
  - Rash pruritic [Recovered/Resolved]
  - Hypomagnesaemia [Recovered/Resolved]
  - Diarrhoea [Recovered/Resolved]
  - Disease progression [Fatal]
  - Rectal haemorrhage [Not Recovered/Not Resolved]
  - Vomiting [Recovered/Resolved]
  - Back pain [Not Recovered/Not Resolved]
  - Pulmonary embolism [Fatal]

NARRATIVE: CASE EVENT DATE: 20160323
